FAERS Safety Report 14282047 (Version 29)
Quarter: 2021Q3

REPORT INFORMATION
  Report Type: Spontaneous
  Country: FR (occurrence: FR)
  Receive Date: 20171213
  Receipt Date: 20210824
  Transmission Date: 20211014
  Serious: Yes (Hospitalization)
  Sender: FDA-Public Use
  Company Number: FR-PFIZER INC-2017524123

PATIENT
  Age: 75 Year
  Sex: Male
  Weight: 88 kg

DRUGS (42)
  1. NEFOPAM [Suspect]
     Active Substance: NEFOPAM
     Dosage: 3 DF, 1X/DAY
  2. XARELTO [Suspect]
     Active Substance: RIVAROXABAN
     Dosage: 1 DF, UNK
     Dates: start: 20170824, end: 20171025
  3. XARELTO [Suspect]
     Active Substance: RIVAROXABAN
     Indication: ATRIAL FIBRILLATION
     Dosage: 20 MG, 1X/DAY
     Route: 048
     Dates: start: 20170824, end: 20171025
  4. SEROPLEX [Suspect]
     Active Substance: ESCITALOPRAM OXALATE
     Indication: DEPRESSIVE SYMPTOM
     Dosage: 1 DF, 1X/DAY
     Route: 048
     Dates: start: 20170101, end: 20170910
  5. TAVANIC [Suspect]
     Active Substance: LEVOFLOXACIN
     Dosage: 2 DF, 1X/DAY
     Route: 048
     Dates: start: 20170905, end: 20170919
  6. ALPRAZOLAM. [Suspect]
     Active Substance: ALPRAZOLAM
     Dosage: 0.75 MG, 3X/DAY
     Route: 048
     Dates: start: 20170928
  7. PANTOPRAZOLE [Suspect]
     Active Substance: PANTOPRAZOLE
     Indication: GASTROOESOPHAGEAL REFLUX DISEASE
     Dosage: 20 MG, 1X/DAY
     Route: 048
     Dates: start: 20150101, end: 20171025
  8. FUROSEMIDE. [Suspect]
     Active Substance: FUROSEMIDE
     Dosage: UNK UNK, QD
     Route: 048
     Dates: start: 20170825, end: 20171003
  9. NEFOPAM [Suspect]
     Active Substance: NEFOPAM
     Dosage: 3 UG, 1X/DAY
     Route: 048
  10. COLCHICINE OPOCALCIUM [Suspect]
     Active Substance: COLCHICINE
     Indication: GOUT
     Dosage: 1 MG, 1X/DAY
     Route: 048
     Dates: start: 20170914, end: 20170921
  11. COLCHICINE OPOCALCIUM [Suspect]
     Active Substance: COLCHICINE
     Dosage: 1 DF, 1X/DAY/QD
     Route: 048
     Dates: start: 20170914, end: 20170921
  12. TAVANIC [Suspect]
     Active Substance: LEVOFLOXACIN
     Dosage: 500 MG, DAILY
     Route: 048
     Dates: start: 20170905
  13. TERBUTALINE SULFATE. [Suspect]
     Active Substance: TERBUTALINE SULFATE
     Dosage: 1 UG, UNK
     Route: 055
  14. AMLODIPINE BESILATE [Suspect]
     Active Substance: AMLODIPINE BESYLATE
     Indication: HYPERTENSION
     Dosage: 10 MG, 1X/DAY
     Route: 048
     Dates: start: 20170825, end: 20170927
  15. FUROSEMIDE. [Suspect]
     Active Substance: FUROSEMIDE
     Dosage: 2 DF, 1X/DAY
     Route: 048
  16. FUROSEMIDE. [Suspect]
     Active Substance: FUROSEMIDE
     Dosage: 30 MILLIGRAM, QD
     Route: 048
     Dates: start: 20170625
  17. DIAZEPAM. [Suspect]
     Active Substance: DIAZEPAM
     Indication: DEPRESSIVE SYMPTOM
     Dosage: 10 MG, 3X/DAY (IF NEEDED)
     Route: 048
     Dates: start: 20170101, end: 20170927
  18. DIAZEPAM. [Suspect]
     Active Substance: DIAZEPAM
     Dosage: 30 MG, 1X/DAY/QD
     Route: 048
     Dates: start: 20170101, end: 20170927
  19. TERBUTALINE SULFATE. [Suspect]
     Active Substance: TERBUTALINE SULFATE
     Indication: LUNG DISORDER
     Dosage: 1 DF, 1X/DAY
     Route: 055
     Dates: start: 20170914, end: 20170921
  20. ALPRAZOLAM. [Suspect]
     Active Substance: ALPRAZOLAM
     Indication: DEPRESSIVE SYMPTOM
     Dosage: 0.25 MG, 3X/DAY
     Route: 048
     Dates: start: 20170928
  21. ALPRAZOLAM. [Suspect]
     Active Substance: ALPRAZOLAM
     Dosage: 0.75 MG, 1X/DAY
     Dates: start: 20170928
  22. METFORMIN [Suspect]
     Active Substance: METFORMIN HYDROCHLORIDE
     Dosage: 1000 MG, 1X/DAY/QD
     Route: 048
     Dates: start: 20170824, end: 20171025
  23. IRBESARTAN. [Suspect]
     Active Substance: IRBESARTAN
     Indication: HYPERTENSION
     Dosage: 300 MG, 1X/DAY
     Route: 048
     Dates: start: 20150101, end: 20171006
  24. BISOPROLOL FUMARATE. [Suspect]
     Active Substance: BISOPROLOL FUMARATE
     Indication: HYPERTENSION
     Dosage: 1.25 MG, 1X/DAY
     Route: 048
     Dates: start: 20171006
  25. VALIUM [Suspect]
     Active Substance: DIAZEPAM
     Indication: DEPRESSIVE SYMPTOM
     Dosage: 10 MG, 3X/DAY, IF NEEDED
     Route: 048
     Dates: start: 20170101, end: 20170927
  26. NEFOPAM HYDROCHLORIDE [Suspect]
     Active Substance: NEFOPAM HYDROCHLORIDE
     Indication: PAIN
     Dosage: 3 UG, 1X/DAY/QD
     Route: 048
  27. MIRTAZAPINE. [Suspect]
     Active Substance: MIRTAZAPINE
     Indication: DEPRESSIVE SYMPTOM
     Dosage: 15 MG, 1X/DAY
     Route: 048
     Dates: start: 20170910
  28. IRBESARTAN. [Suspect]
     Active Substance: IRBESARTAN
     Dosage: 500 MG, 2X/DAY
     Dates: start: 2015, end: 20171006
  29. DAFALGAN [Suspect]
     Active Substance: ACETAMINOPHEN
     Dosage: 6 DF, DAILY
     Dates: start: 20171009, end: 20171009
  30. NEFOPAM [Suspect]
     Active Substance: NEFOPAM
     Indication: PAIN
     Dosage: 1 DF, 3X/DAY
     Route: 048
  31. DIFFU K [Suspect]
     Active Substance: POTASSIUM CHLORIDE
     Dosage: 6 DF, 1X/DAY/QD
     Route: 048
     Dates: start: 20170824, end: 20171003
  32. METFORMIN [Suspect]
     Active Substance: METFORMIN HYDROCHLORIDE
     Indication: DIABETES MELLITUS
     Dosage: 500 MG, 2X/DAY
     Route: 048
     Dates: start: 20170824, end: 20171025
  33. FUROSEMIDE. [Suspect]
     Active Substance: FUROSEMIDE
     Indication: HYPERTENSION
     Dosage: 30 MG, 1X/DAY
     Route: 048
     Dates: start: 20170825, end: 20171003
  34. DAFALGAN [Suspect]
     Active Substance: ACETAMINOPHEN
     Indication: PAIN
     Dosage: 1000 MG, 3X/DAY
     Route: 048
     Dates: start: 20171009
  35. NEFOPAM [Suspect]
     Active Substance: NEFOPAM
     Dosage: 3 DF, 3X/DAY
     Route: 048
  36. DIFFU K [Suspect]
     Active Substance: POTASSIUM CHLORIDE
     Indication: HYPOKALAEMIA
     Dosage: 3 DF (2?1?0), 2X/DAY
     Route: 048
     Dates: start: 20170824, end: 20171003
  37. VALIUM [Suspect]
     Active Substance: DIAZEPAM
     Dosage: 3 DF, DAILY
     Dates: start: 20170101, end: 20170927
  38. PANTOPRAZOLE [Suspect]
     Active Substance: PANTOPRAZOLE
     Dosage: 20 MILLIGRAM, QD
     Route: 048
     Dates: start: 20171025
  39. DAFALGAN [Suspect]
     Active Substance: ACETAMINOPHEN
     Dosage: 1000 MG, 3X/DAY
     Route: 048
     Dates: start: 20171019
  40. XARELTO [Suspect]
     Active Substance: RIVAROXABAN
     Dosage: 1 DF, 1X/DAY
     Dates: start: 20170824, end: 20170825
  41. TAVANIC [Suspect]
     Active Substance: LEVOFLOXACIN
     Indication: LUNG DISORDER
     Dosage: 250 MG, 2X/DAY
     Route: 048
     Dates: start: 20170905, end: 20170919
  42. VALIUM [Suspect]
     Active Substance: DIAZEPAM
     Dosage: 3 UG, 1X/DAY/QD
     Route: 048
     Dates: start: 20170101, end: 20170927

REACTIONS (1)
  - Agranulocytosis [Recovered/Resolved]

NARRATIVE: CASE EVENT DATE: 20171024
